FAERS Safety Report 13142357 (Version 3)
Quarter: 2017Q1

REPORT INFORMATION
  Report Type: Spontaneous
  Country: JP (occurrence: JP)
  Receive Date: 20170123
  Receipt Date: 20170208
  Transmission Date: 20170428
  Serious: Yes (Hospitalization)
  Sender: FDA-Public Use
  Company Number: JP-ALLERGAN-1702396US

PATIENT
  Age: 61 Year
  Sex: Female

DRUGS (2)
  1. GATIFLO [Suspect]
     Active Substance: GATIFLOXACIN
     Indication: BACTERIAL INFECTION
     Dosage: 2 GTT, Q4HR
     Route: 047
     Dates: start: 20170112, end: 20170113
  2. GATIFLO [Suspect]
     Active Substance: GATIFLOXACIN
     Indication: CONJUNCTIVITIS

REACTIONS (1)
  - Drug eruption [Recovered/Resolved]

NARRATIVE: CASE EVENT DATE: 20170113
